FAERS Safety Report 24053478 (Version 3)
Quarter: 2024Q3

REPORT INFORMATION
  Report Type: Report from Study
  Country: US (occurrence: US)
  Receive Date: 20240705
  Receipt Date: 20240906
  Transmission Date: 20241017
  Serious: Yes (Hospitalization)
  Sender: JOHNSON AND JOHNSON
  Company Number: US-JNJFOC-20240563860

PATIENT
  Age: 78 Year
  Sex: Female

DRUGS (10)
  1. SELEXIPAG [Suspect]
     Active Substance: SELEXIPAG
     Indication: Pulmonary arterial hypertension
     Route: 048
     Dates: start: 20240418, end: 20240607
  2. SELEXIPAG [Suspect]
     Active Substance: SELEXIPAG
     Indication: Pulmonary hypertension
     Dosage: 800 DOSE (UNIT NOT SPECIFIED)
     Route: 048
     Dates: start: 20240516
  3. SELEXIPAG [Suspect]
     Active Substance: SELEXIPAG
     Route: 048
  4. SELEXIPAG [Suspect]
     Active Substance: SELEXIPAG
     Dosage: 200 (UNIT NOT SPECIFIED)
     Route: 048
     Dates: start: 20240626
  5. SELEXIPAG [Suspect]
     Active Substance: SELEXIPAG
     Dosage: DOSE 400MCG TWICE DAILY USING 2 200MCG TABLETS
     Route: 048
  6. SELEXIPAG [Suspect]
     Active Substance: SELEXIPAG
     Route: 048
     Dates: start: 20240418
  7. MACITENTAN [Suspect]
     Active Substance: MACITENTAN
     Indication: Pulmonary arterial hypertension
     Route: 048
     Dates: start: 20240814
  8. SILDENAFIL CITRATE [Concomitant]
     Active Substance: SILDENAFIL CITRATE
  9. ELIQUIS [Concomitant]
     Active Substance: APIXABAN
  10. AMLODIPINE [Concomitant]
     Active Substance: AMLODIPINE BESYLATE

REACTIONS (17)
  - Chest discomfort [Unknown]
  - Diarrhoea [Unknown]
  - Dyspnoea [Unknown]
  - Malaise [Unknown]
  - Fatigue [Unknown]
  - Gait disturbance [Unknown]
  - Headache [Unknown]
  - Flushing [Unknown]
  - Chills [Recovering/Resolving]
  - Aphonia [Unknown]
  - Seasonal allergy [Unknown]
  - Pain [Unknown]
  - Drug ineffective [Unknown]
  - Weight increased [Unknown]
  - Dizziness [Recovered/Resolved]
  - Flatulence [Unknown]
  - Urinary tract disorder [Unknown]

NARRATIVE: CASE EVENT DATE: 20240419
